FAERS Safety Report 5659438-7 (Version None)
Quarter: 2008Q1

REPORT INFORMATION
  Report Type: 
  Country: None (occurrence: None)
  Receive Date: 20080307
  Receipt Date: 20080307
  Transmission Date: 20080703
  Serious: Yes (Other)
  Sender: FDA-Public Use
  Company Number: None

PATIENT
  Sex: Female
  Weight: 145.6046 kg

DRUGS (1)
  1. DURAGESIC-100 [Suspect]
     Dosage: 50MCG Q72H TD
     Route: 062

REACTIONS (1)
  - NO ADVERSE EVENT [None]
